FAERS Safety Report 4348768-7 (Version None)
Quarter: 2004Q1

REPORT INFORMATION
  Report Type: 
  Country: None (occurrence: None)
  Receive Date: 20040325
  Receipt Date: 20040114
  Transmission Date: 20041129
  Serious: No
  Sender: FDA-Public Use
  Company Number: USA040156553

PATIENT
  Age: 55 Year
  Sex: Female

DRUGS (7)
  1. FORTEO [Suspect]
     Indication: OSTEOPOROSIS
     Dates: start: 20030531
  2. EVISTA [Suspect]
  3. ZANTAC [Concomitant]
  4. CALCIUM [Concomitant]
  5. VASOTEC [Concomitant]
  6. ATENOLOL [Concomitant]
  7. MULTI-VITAMINS [Concomitant]

REACTIONS (2)
  - UPPER RESPIRATORY TRACT INFECTION [None]
  - URINARY TRACT INFECTION [None]
